FAERS Safety Report 7598417-X (Version None)
Quarter: 2011Q3

REPORT INFORMATION
  Report Type: 
  Country: None (occurrence: None)
  Receive Date: 20110708
  Receipt Date: 20110707
  Transmission Date: 20111222
  Serious: Yes (Death)
  Sender: FDA-Public Use
  Company Number: US-ABBOTT-09P-163-0582357-00

PATIENT
  Sex: Male
  Weight: 90.346 kg

DRUGS (15)
  1. LASIX [Concomitant]
     Indication: HYPERTENSION
     Dates: end: 20090424
  2. SPIRONOLACTONE [Concomitant]
     Indication: HYPERTENSION
     Dates: end: 20090424
  3. POTASSIUM [Concomitant]
     Indication: ELECTROLYTE SUBSTITUTION THERAPY
     Dates: end: 20090424
  4. LORATADINE [Concomitant]
     Indication: PRODUCT USED FOR UNKNOWN INDICATION
     Dates: end: 20090424
  5. HUMIRA [Suspect]
     Indication: CROHN'S DISEASE
     Route: 058
     Dates: start: 20080813
  6. FERROUS SULFATE TAB [Concomitant]
     Indication: PRODUCT USED FOR UNKNOWN INDICATION
     Dates: end: 20090424
  7. FOLIC ACID [Concomitant]
     Indication: CROHN'S DISEASE
     Dates: end: 20090424
  8. THIAMINE [Concomitant]
     Indication: PRODUCT USED FOR UNKNOWN INDICATION
     Dates: end: 20090424
  9. FLUOXETINE [Concomitant]
     Indication: DEPRESSION
     Dates: end: 20090424
  10. PREDNISONE [Suspect]
     Indication: RASH PRURITIC
     Dates: start: 20090101, end: 20090401
  11. TOPROL-XL [Concomitant]
     Indication: HYPERTENSION
     Dates: end: 20090424
  12. NEXIUM [Concomitant]
     Indication: GASTROOESOPHAGEAL REFLUX DISEASE
     Dates: end: 20090424
  13. PREDNISONE [Suspect]
     Indication: ECCHYMOSIS
     Dosage: TITRATE DOWN DOSE
     Dates: start: 20090401, end: 20090424
  14. ASACOL [Concomitant]
     Indication: CROHN'S DISEASE
     Dates: end: 20090424
  15. PRILOSEC [Concomitant]
     Indication: PRODUCT USED FOR UNKNOWN INDICATION

REACTIONS (6)
  - RASH PRURITIC [None]
  - ECCHYMOSIS [None]
  - HAEMATOCHEZIA [None]
  - ALCOHOL USE [None]
  - HEPATIC STEATOSIS [None]
  - HEPATIC CIRRHOSIS [None]
